FAERS Safety Report 20407312 (Version 1)
Quarter: 2022Q1

REPORT INFORMATION
  Report Type: Spontaneous
  Country: US (occurrence: US)
  Receive Date: 20220131
  Receipt Date: 20220131
  Transmission Date: 20220424
  Serious: Yes (Hospitalization, Other)
  Sender: FDA-Public Use
  Company Number: US-009507513-2201USA007747

PATIENT
  Sex: Male

DRUGS (1)
  1. KEYTRUDA [Suspect]
     Active Substance: PEMBROLIZUMAB
     Indication: Lung neoplasm
     Dosage: UNK UNK, Q3W
     Route: 042

REACTIONS (4)
  - COVID-19 [Unknown]
  - Recurrent cancer [Unknown]
  - Adverse event [Not Recovered/Not Resolved]
  - Eye disorder [Unknown]
